FAERS Safety Report 7102895-X (Version None)
Quarter: 2010Q4

REPORT INFORMATION
  Report Type: 
  Country: None (occurrence: None)
  Receive Date: 20101115
  Receipt Date: 20101105
  Transmission Date: 20110411
  Serious: Yes (Hospitalization)
  Sender: FDA-Public Use
  Company Number: NO-ASTRAZENECA-2010SE52724

PATIENT
  Sex: Male

DRUGS (1)
  1. SELOKEN ZOC [Suspect]
     Route: 048

REACTIONS (2)
  - FALL [None]
  - NIGHTMARE [None]
